FAERS Safety Report 5097890-9 (Version None)
Quarter: 2006Q3

REPORT INFORMATION
  Report Type: 
  Country: None (occurrence: None)
  Receive Date: 20060905
  Receipt Date: 20060905
  Transmission Date: 20061208
  Serious: Yes (Life-Threatening, Hospitalization, Disabling)
  Sender: FDA-Public Use
  Company Number: None

PATIENT
  Age: 60 Year
  Sex: Male
  Weight: 59.8748 kg

DRUGS (6)
  1. AVASTIN [Suspect]
     Indication: RENAL CANCER METASTATIC
     Dosage: IV
     Route: 042
     Dates: start: 20060717, end: 20060728
  2. DARVOCET [Concomitant]
  3. ATIVAN [Concomitant]
  4. XELODA [Concomitant]
  5. POTASSIUM [Concomitant]
  6. AVASTIN [Concomitant]

REACTIONS (5)
  - ABDOMINAL PAIN [None]
  - COMPUTERISED TOMOGRAM ABDOMEN ABNORMAL [None]
  - CONSTIPATION [None]
  - GASTROINTESTINAL DISORDER [None]
  - INTESTINAL DILATATION [None]
